FAERS Safety Report 7378179-1 (Version None)
Quarter: 2011Q1

REPORT INFORMATION
  Report Type: 
  Country: None (occurrence: None)
  Receive Date: 20110328
  Receipt Date: 20110316
  Transmission Date: 20110831
  Serious: Yes (Other)
  Sender: FDA-Public Use
  Company Number: A0753353A

PATIENT
  Age: 61 Year
  Sex: Female

DRUGS (5)
  1. LORATADINE [Concomitant]
  2. AVANDIA [Suspect]
     Route: 048
     Dates: end: 20050801
  3. AVANDAMET [Suspect]
     Route: 048
     Dates: end: 20050101
  4. IBUPROFEN [Concomitant]
  5. PAXIL [Concomitant]

REACTIONS (1)
  - MYOCARDIAL INFARCTION [None]
